FAERS Safety Report 6779632-1 (Version None)
Quarter: 2010Q2

REPORT INFORMATION
  Report Type: 
  Country: None (occurrence: None)
  Receive Date: 20100618
  Receipt Date: 20100616
  Transmission Date: 20101027
  Serious: Yes (Hospitalization)
  Sender: FDA-Public Use
  Company Number: B0656601A

PATIENT
  Sex: Female
  Weight: 66.5 kg

DRUGS (14)
  1. MARAVIROC [Suspect]
     Indication: HIV INFECTION
     Dosage: 150MG TWICE PER DAY
     Route: 048
     Dates: start: 20080408, end: 20080501
  2. DARUNAVIR [Suspect]
     Indication: HIV INFECTION
     Dosage: 300MG TWICE PER DAY
     Route: 048
     Dates: start: 20080408, end: 20080501
  3. TENOFOVIR [Concomitant]
     Route: 048
     Dates: start: 20080408, end: 20080501
  4. RITONAVIR [Concomitant]
     Route: 048
     Dates: start: 20080408, end: 20080501
  5. ZIDOVUDINE [Concomitant]
     Route: 048
     Dates: start: 20080408, end: 20080501
  6. LAMIVUDINE-HIV [Concomitant]
     Route: 048
     Dates: start: 20080408, end: 20080501
  7. ENFUVIRTIDE [Concomitant]
     Route: 048
     Dates: start: 20080408, end: 20080507
  8. CIPROFLOXACIN [Concomitant]
     Route: 048
     Dates: start: 20080422, end: 20080428
  9. PREDNISONE [Concomitant]
     Route: 048
     Dates: start: 20080428, end: 20080430
  10. HYOSCINE HBR HYT [Concomitant]
     Route: 048
     Dates: start: 20080418
  11. DEXCHLORPHENIRAMINE MALEATE [Concomitant]
     Route: 048
     Dates: start: 20080428, end: 20080430
  12. BACTRIM [Concomitant]
     Route: 048
     Dates: start: 20080408, end: 20080501
  13. DIPIRONA [Concomitant]
     Route: 048
     Dates: start: 20080418
  14. FOSAMPRENAVIR [Concomitant]
     Route: 048
     Dates: start: 20080527

REACTIONS (4)
  - ABDOMINAL PAIN [None]
  - DECREASED APPETITE [None]
  - NAUSEA [None]
  - VOMITING [None]
